FAERS Safety Report 25456189 (Version 1)
Quarter: 2025Q2

REPORT INFORMATION
  Report Type: Spontaneous
  Country: US (occurrence: US)
  Receive Date: 20250619
  Receipt Date: 20250619
  Transmission Date: 20250716
  Serious: No
  Sender: BAYER HEALTHCARE PHARMACEUTICALS INC.
  Company Number: US-BAYER-2025A080334

PATIENT
  Age: 46 Year
  Sex: Female

DRUGS (2)
  1. MIRENA [Suspect]
     Active Substance: LEVONORGESTREL
     Indication: Intrauterine contraception
     Dosage: 20?G/DAY
     Route: 015
     Dates: start: 202106
  2. KISQALI [Concomitant]
     Active Substance: RIBOCICLIB SUCCINATE

REACTIONS (3)
  - Arthralgia [None]
  - Stomatitis [None]
  - Bone pain [None]

NARRATIVE: CASE EVENT DATE: 20250601
